FAERS Safety Report 7357643-5 (Version None)
Quarter: 2011Q1

REPORT INFORMATION
  Report Type: 
  Country: None (occurrence: None)
  Receive Date: 20110317
  Receipt Date: 20110310
  Transmission Date: 20110831
  Serious: Yes (Other)
  Sender: FDA-Public Use
  Company Number: US-ELI_LILLY_AND_COMPANY-US200910006904

PATIENT
  Sex: Male

DRUGS (6)
  1. ANTIBIOTICS [Concomitant]
     Indication: STAPHYLOCOCCAL INFECTION
     Dosage: UNK, UNKNOWN
  2. FORTEO [Suspect]
     Dosage: 20 UG, DAILY (1/D)
  3. FORTEO [Suspect]
  4. FORTEO [Suspect]
     Indication: OSTEOPOROSIS
     Dosage: 20 UG, DAILY (1/D)
     Route: 065
  5. COUMADIN [Concomitant]
  6. ANALGESICS [Concomitant]
     Dosage: UNK, UNKNOWN
     Route: 065

REACTIONS (7)
  - SPINAL FUSION SURGERY [None]
  - PAIN [None]
  - HAEMATURIA [None]
  - MUSCLE INJURY [None]
  - RETINAL HAEMORRHAGE [None]
  - SPINAL COMPRESSION FRACTURE [None]
  - PELVIC FRACTURE [None]
